FAERS Safety Report 7818647-9 (Version None)
Quarter: 2011Q4

REPORT INFORMATION
  Report Type: 
  Country: None (occurrence: None)
  Receive Date: 20111018
  Receipt Date: 20111006
  Transmission Date: 20120403
  Serious: Yes (Hospitalization)
  Sender: FDA-Public Use
  Company Number: FR-BRISTOL-MYERS SQUIBB COMPANY-16166332

PATIENT
  Age: 58 Year
  Sex: Female

DRUGS (16)
  1. ACETAMINOPHEN [Concomitant]
     Dosage: 1GM
  2. ARCOXIA [Concomitant]
  3. PROPRANOLOL [Concomitant]
     Dosage: 40MG
  4. AMLODIPINE BESYLATE [Concomitant]
     Dosage: AMLOR 5
  5. GLUCOPHAGE [Suspect]
     Indication: DIABETES MELLITUS
     Dosage: 09AUG11-UNK;1000MG;500MG MRNG AND EVEN,UNK-ONG;2GM;1GM AM AND PM,1700MG;850MG AM AND PM 3 DAYS
     Route: 048
     Dates: start: 20110809
  6. CRESTOR [Concomitant]
     Dosage: CRESTOR 5MG
  7. CEFTRIAXONE [Suspect]
     Indication: PSOAS ABSCESS
     Dosage: CEFTRIAXONE PANPHARMA,PRESCRIBED FOR 6 WEEKS
     Route: 042
     Dates: start: 20110805
  8. NEXIUM [Concomitant]
  9. TRAMADOL HCL [Concomitant]
     Dosage: ZUMALGIC 100MG
  10. ALLOPURINOL [Concomitant]
     Dosage: ALLOPURINOL 100
  11. ALDACTONE [Concomitant]
     Dosage: ALDACTONE 25
  12. FUROSEMIDE [Concomitant]
  13. JANUVIA [Suspect]
     Indication: DIABETES MELLITUS
     Dosage: 100MG COATED TAB
     Route: 048
     Dates: start: 20110809, end: 20110812
  14. LEVOFLOXACIN [Suspect]
     Indication: SEPSIS
     Dosage: PRESCRIBED FOR 6 WEEKS
     Route: 048
     Dates: start: 20110812
  15. POTASSIUM CHLORIDE [Concomitant]
  16. ESCITALOPRAM OXALATE [Concomitant]
     Dosage: SEROPLEX 20

REACTIONS (1)
  - ENCEPHALOPATHY [None]
